FAERS Safety Report 6526791-1 (Version None)
Quarter: 2010Q1

REPORT INFORMATION
  Report Type: 
  Country: None (occurrence: None)
  Receive Date: 20100104
  Receipt Date: 20100104
  Transmission Date: 20100710
  Serious: Yes (Life-Threatening, Hospitalization, Other)
  Sender: FDA-Public Use
  Company Number: None

PATIENT
  Sex: Female
  Weight: 68.9467 kg

DRUGS (1)
  1. AMBIEN CR [Suspect]
     Indication: INSOMNIA
     Dosage: 12.5 MG 1 H.S. P.O. TAKEN 20X IN 2 MOS
     Route: 048
     Dates: start: 20091208

REACTIONS (3)
  - AMNESIA [None]
  - MENTAL STATUS CHANGES [None]
  - SOMNAMBULISM [None]
